FAERS Safety Report 8114911-7 (Version None)
Quarter: 2012Q1

REPORT INFORMATION
  Report Type: 
  Country: None (occurrence: None)
  Receive Date: 20120206
  Receipt Date: 20120125
  Transmission Date: 20120608
  Serious: Yes (Other)
  Sender: FDA-Public Use
  Company Number: US-JNJFOC-20120111479

PATIENT
  Sex: Male
  Weight: 79.83 kg

DRUGS (4)
  1. REMICADE [Suspect]
     Indication: COLITIS ULCERATIVE
     Route: 042
  2. ATORVASTATIN [Concomitant]
     Indication: BLOOD CHOLESTEROL INCREASED
     Route: 048
     Dates: start: 20110101
  3. SERTRALINE HYDROCHLORIDE [Concomitant]
     Indication: SLEEP DISORDER
     Route: 048
     Dates: start: 20111201
  4. AMLODIPINE [Concomitant]
     Indication: HYPERTENSION
     Route: 048
     Dates: start: 20111101

REACTIONS (3)
  - WEIGHT INCREASED [None]
  - VIRAL INFECTION [None]
  - DIARRHOEA [None]
